FAERS Safety Report 5744253-6 (Version None)
Quarter: 2008Q2

REPORT INFORMATION
  Report Type: 
  Country: None (occurrence: None)
  Receive Date: 20080516
  Receipt Date: 20080516
  Transmission Date: 20081010
  Serious: No
  Sender: FDA-Public Use
  Company Number: None

PATIENT
  Age: 60 Year
  Sex: Female
  Weight: 86.1834 kg

DRUGS (1)
  1. ARIMIDEX [Suspect]
     Indication: BREAST CANCER
     Dosage: ONE PILL A DAY NIGHTLY
     Dates: start: 20061201, end: 20071218

REACTIONS (28)
  - ABDOMINAL PAIN UPPER [None]
  - ALOPECIA [None]
  - ARTHRALGIA [None]
  - ARTHRITIS [None]
  - ASTHENIA [None]
  - ASTHMA [None]
  - BLOOD CHOLESTEROL INCREASED [None]
  - BLOOD TRIGLYCERIDES INCREASED [None]
  - BONE PAIN [None]
  - BREAST PAIN [None]
  - CHOKING [None]
  - COUGH [None]
  - DEPRESSION [None]
  - DIARRHOEA [None]
  - DIZZINESS [None]
  - DRUG HYPERSENSITIVITY [None]
  - DYSPNOEA [None]
  - FLUID RETENTION [None]
  - HAEMORRHAGE [None]
  - HEADACHE [None]
  - INSOMNIA [None]
  - LYMPH NODE PAIN [None]
  - MOOD ALTERED [None]
  - PAIN [None]
  - PHARYNGOLARYNGEAL PAIN [None]
  - VAGINAL HAEMORRHAGE [None]
  - VULVOVAGINAL DRYNESS [None]
  - WEIGHT INCREASED [None]
